FAERS Safety Report 20917580 (Version 1)
Quarter: 2022Q2

REPORT INFORMATION
  Report Type: Spontaneous
  Country: US (occurrence: US)
  Receive Date: 20220606
  Receipt Date: 20220606
  Transmission Date: 20220721
  Serious: Yes (Life-Threatening, Hospitalization, Other)
  Sender: FDA-Public Use
  Company Number: US-CELLTRION INC.-2022US008485

PATIENT

DRUGS (2)
  1. RITUXIMAB [Suspect]
     Active Substance: RITUXIMAB
     Indication: Multiple sclerosis
     Dosage: UNK
     Dates: start: 201506
  2. RITUXIMAB [Suspect]
     Active Substance: RITUXIMAB
     Dosage: MOST RECENT RITUXIMAB INFUSION
     Dates: start: 202009

REACTIONS (9)
  - COVID-19 [Not Recovered/Not Resolved]
  - Respiratory distress [Unknown]
  - Somnolence [Unknown]
  - Lethargy [Unknown]
  - Tachycardia [Unknown]
  - Hypotension [Unknown]
  - COVID-19 [Recovered/Resolved]
  - Mental impairment [Unknown]
  - Off label use [Unknown]

NARRATIVE: CASE EVENT DATE: 20201001
